FAERS Safety Report 20648978 (Version 1)
Quarter: 2022Q1

REPORT INFORMATION
  Report Type: Report from Study
  Country: AR (occurrence: AR)
  Receive Date: 20220329
  Receipt Date: 20220329
  Transmission Date: 20220423
  Serious: Yes (Other)
  Sender: FDA-Public Use
  Company Number: AR-NOVARTISPH-NVSC2021AR010987

PATIENT
  Age: 54 Year
  Sex: Female

DRUGS (3)
  1. COSENTYX [Suspect]
     Active Substance: SECUKINUMAB
     Indication: Psoriasis
     Dosage: 300 MG, QMO
     Route: 058
     Dates: start: 20200123
  2. COSENTYX [Suspect]
     Active Substance: SECUKINUMAB
     Indication: Psoriatic arthropathy
     Dosage: 300 MG, QMO
     Route: 058
     Dates: start: 202006
  3. NPH INSULIN [Concomitant]
     Active Substance: INSULIN BEEF
     Indication: Product used for unknown indication
     Dosage: 25 UNITS, QD AND TO CORRECT USE IF NEEDED 10 OR 6 ADDITIONAL UNITS
     Route: 065

REACTIONS (11)
  - Psoriatic arthropathy [Not Recovered/Not Resolved]
  - Condition aggravated [Unknown]
  - Pain [Unknown]
  - Gait disturbance [Unknown]
  - Psoriasis [Not Recovered/Not Resolved]
  - Arthralgia [Not Recovered/Not Resolved]
  - Discomfort [Not Recovered/Not Resolved]
  - Pruritus [Unknown]
  - Burning sensation [Unknown]
  - Abdominal discomfort [Unknown]
  - Product dose omission issue [Unknown]

NARRATIVE: CASE EVENT DATE: 20201101
